FAERS Safety Report 10793271 (Version 1)
Quarter: 2015Q1

REPORT INFORMATION
  Report Type: Spontaneous
  Country: JP (occurrence: JP)
  Receive Date: 20150213
  Receipt Date: 20150213
  Transmission Date: 20150721
  Serious: Yes (Hospitalization)
  Sender: FDA-Public Use
  Company Number: JP-AMGEN-JPNOT2015013844

PATIENT
  Age: 69 Year
  Sex: Female

DRUGS (17)
  1. CISPLATIN. [Concomitant]
     Active Substance: CISPLATIN
  2. METFORMIN HYDROCHLORIDE. [Concomitant]
     Active Substance: METFORMIN HYDROCHLORIDE
     Dosage: 750 MG, UNK
  3. VOGLIBOSE [Concomitant]
     Active Substance: VOGLIBOSE
  4. FEC [Concomitant]
  5. ADRIAMYCIN [Concomitant]
     Active Substance: DOXORUBICIN HYDROCHLORIDE
  6. EXEMESTANE. [Concomitant]
     Active Substance: EXEMESTANE
  7. DEXTROMETHORPHAN HYDROBROMIDE MONOHYDRATE [Concomitant]
     Dosage: 15 MG, QD
  8. EVEROLIMUS [Concomitant]
     Active Substance: EVEROLIMUS
  9. MEDROXYPROGESTERONE ACETATE. [Concomitant]
     Active Substance: MEDROXYPROGESTERONE ACETATE
     Dosage: UNK
     Dates: start: 201404
  10. CYCLOPHOSPHAMIDE. [Concomitant]
     Active Substance: CYCLOPHOSPHAMIDE
  11. LEVOFLOXACIN HEMIHYDRATE [Concomitant]
     Active Substance: LEVOFLOXACIN
     Dosage: 500 MG, UNK
  12. GLIMEPIRIDE. [Concomitant]
     Active Substance: GLIMEPIRIDE
     Dosage: 2 MG, UNK
  13. INSULIN [Concomitant]
     Active Substance: INSULIN NOS
  14. RANMARK [Suspect]
     Active Substance: DENOSUMAB
     Indication: METASTASES TO BONE
     Dosage: UNK MG, UNK
     Route: 065
     Dates: start: 201205
  15. DOCETAXEL. [Concomitant]
     Active Substance: DOCETAXEL
  16. AZITHROMYCIN                       /00944303/ [Concomitant]
     Dosage: 500 MG, UNK
  17. CEFTRIAXONE SODIUM. [Concomitant]
     Active Substance: CEFTRIAXONE SODIUM
     Dosage: 1 G, UNK

REACTIONS (5)
  - Stomatitis [Recovered/Resolved]
  - Bronchitis [Recovered/Resolved]
  - Malaise [Recovered/Resolved]
  - Rash [Recovered/Resolved]
  - Glycosylated haemoglobin increased [Recovered/Resolved]
